FAERS Safety Report 23587938 (Version 3)
Quarter: 2024Q3

REPORT INFORMATION
  Report Type: Report from Study
  Country: EG (occurrence: EG)
  Receive Date: 20240301
  Receipt Date: 20240827
  Transmission Date: 20241017
  Serious: No
  Sender: SANDOZ
  Company Number: EG-002147023-NVSC2023EG144917

PATIENT
  Sex: Male
  Weight: 47 kg

DRUGS (3)
  1. OMNITROPE [Suspect]
     Active Substance: SOMATROPIN
     Indication: Blood growth hormone decreased
     Dosage: UNK (STARTED SINCE 1 YEAR AND STOPPED MORE THAN A WEEK AGO), 10-JUN-2022
     Route: 058
     Dates: end: 202306
  2. OCTOZINC [Concomitant]
     Indication: Multi-vitamin deficiency
     Dosage: 1 DOSAGE FORM, QD (STARTED BEFORE OMNITROPE)
     Route: 065
  3. TRIPLE OMEGA 3 6 9 [Concomitant]
     Indication: Multi-vitamin deficiency
     Dosage: 1 DOSAGE FORM, QD (STARTED BEFORE OMNITROPE)
     Route: 065

REACTIONS (8)
  - Injection site reaction [Recovered/Resolved]
  - Drug dose omission by device [Recovered/Resolved]
  - Wrong technique in product usage process [Recovered/Resolved]
  - Accidental exposure to product [Recovered/Resolved]
  - Product availability issue [Not Recovered/Not Resolved]
  - Therapy interrupted [Not Recovered/Not Resolved]
  - Device leakage [Unknown]
  - Device issue [Unknown]

NARRATIVE: CASE EVENT DATE: 20220101
